FAERS Safety Report 5814538-3 (Version None)
Quarter: 2008Q3

REPORT INFORMATION
  Report Type: 
  Country: None (occurrence: None)
  Receive Date: 20080718
  Receipt Date: 20070628
  Transmission Date: 20090109
  Serious: No
  Sender: FDA-Public Use
  Company Number: US-KINGPHARMUSA00001-K200700826

PATIENT

DRUGS (2)
  1. LEVOXYL [Suspect]
     Indication: AUTOIMMUNE THYROIDITIS
     Dosage: 75 MCG, QHS
     Dates: start: 20060101
  2. LEVOXYL [Suspect]
     Dosage: 50 MCG, QHS
     Dates: end: 20060101

REACTIONS (9)
  - ALOPECIA [None]
  - DYSPNOEA [None]
  - FATIGUE [None]
  - FEELING ABNORMAL [None]
  - HEAD DISCOMFORT [None]
  - INSOMNIA [None]
  - PALPITATIONS [None]
  - TREMOR [None]
  - VERTIGO [None]
